FAERS Safety Report 5304470-6 (Version None)
Quarter: 2007Q2

REPORT INFORMATION
  Report Type: 
  Country: None (occurrence: None)
  Receive Date: 20070419
  Receipt Date: 20070419
  Transmission Date: 20071010
  Serious: Yes (Hospitalization, Other)
  Sender: FDA-Public Use
  Company Number: None

PATIENT
  Sex: Female
  Weight: 29.2 kg

DRUGS (1)
  1. REMODULIN 2.5 MG VIAL, UNITED THERAPUETICS [Suspect]
     Indication: PULMONARY HYPERTENSION
     Dosage: 95NG/KG/MIN   CONT.   IV
     Route: 042

REACTIONS (7)
  - BACTERIAL INFECTION [None]
  - CATHETER SITE INFECTION [None]
  - ENTEROBACTER INFECTION [None]
  - FEBRILE CONVULSION [None]
  - PULMONARY EMBOLISM [None]
  - SEPTIC EMBOLUS [None]
  - SYNCOPE [None]
